FAERS Safety Report 20676754 (Version 1)
Quarter: 2022Q2

REPORT INFORMATION
  Report Type: Spontaneous
  Country: CA (occurrence: None)
  Receive Date: 20220406
  Receipt Date: 20220406
  Transmission Date: 20220721
  Serious: Yes (Hospitalization)
  Sender: FDA-Public Use
  Company Number: CA-ROCHE-3061707

PATIENT
  Age: 83 Year
  Sex: Female

DRUGS (1)
  1. ACTEMRA [Suspect]
     Active Substance: TOCILIZUMAB
     Indication: Giant cell arteritis
     Dosage: 162 MG SC ONCE WEEKLY
     Route: 058
     Dates: start: 2022

REACTIONS (8)
  - Pulmonary thrombosis [Unknown]
  - Deep vein thrombosis [Unknown]
  - Intercepted medication error [Unknown]
  - Product physical issue [Unknown]
  - Tension [Unknown]
  - Back pain [Unknown]
  - Chest pain [Unknown]
  - Sinusitis [Unknown]

NARRATIVE: CASE EVENT DATE: 20220318
